FAERS Safety Report 18480719 (Version 1)
Quarter: 2020Q4

REPORT INFORMATION
  Report Type: Report from Study
  Country: US (occurrence: US)
  Receive Date: 20201109
  Receipt Date: 20201109
  Transmission Date: 20210114
  Serious: Yes (Hospitalization)
  Sender: FDA-Public Use
  Company Number: US-EISAI MEDICAL RESEARCH-EC-2020-083428

PATIENT
  Age: 67 Year
  Sex: Male
  Weight: 99.3 kg

DRUGS (21)
  1. SPIRONOLACTONE. [Concomitant]
     Active Substance: SPIRONOLACTONE
  2. TYLENOL EXTRA STRENGTH [Concomitant]
     Active Substance: ACETAMINOPHEN
  3. HALOPERIDOL DECANOATE. [Concomitant]
     Active Substance: HALOPERIDOL DECANOATE
  4. MULTIVITAMIN [Concomitant]
     Active Substance: VITAMINS
  5. LANTUS [Concomitant]
     Active Substance: INSULIN GLARGINE
  6. METFORMIN [Concomitant]
     Active Substance: METFORMIN HYDROCHLORIDE
  7. PROTONIX [Concomitant]
     Active Substance: PANTOPRAZOLE SODIUM
  8. SALINE NASAL SPRAY [Concomitant]
     Active Substance: SODIUM CHLORIDE
  9. IMODIUM A-D [Concomitant]
     Active Substance: LOPERAMIDE HYDROCHLORIDE
  10. MELATONIN [Concomitant]
     Active Substance: MELATONIN
  11. CHLORPROMAZINE. [Concomitant]
     Active Substance: CHLORPROMAZINE
  12. LOVENOX [Concomitant]
     Active Substance: ENOXAPARIN SODIUM
  13. BISACODYL EC [Concomitant]
     Active Substance: BISACODYL
  14. SYNTHROID [Concomitant]
     Active Substance: LEVOTHYROXINE SODIUM
  15. TOPIRAMATE. [Concomitant]
     Active Substance: TOPIRAMATE
  16. FISH OIL BURP-LESS [Concomitant]
  17. ALLOPURINOL. [Concomitant]
     Active Substance: ALLOPURINOL
  18. ASPIRIN. [Concomitant]
     Active Substance: ASPIRIN
  19. MILK OF MAGNESIA [Concomitant]
     Active Substance: MAGNESIUM HYDROXIDE
  20. LENVIMA [Suspect]
     Active Substance: LENVATINIB
     Indication: HEPATIC CANCER
     Route: 048
     Dates: start: 20201006, end: 20201022
  21. HUMALOG [Concomitant]
     Active Substance: INSULIN LISPRO

REACTIONS (1)
  - Malignant neoplasm progression [Not Recovered/Not Resolved]

NARRATIVE: CASE EVENT DATE: 20201022
